FAERS Safety Report 11252346 (Version 1)
Quarter: 2015Q3

REPORT INFORMATION
  Report Type: Spontaneous
  Country: US (occurrence: US)
  Receive Date: 20150708
  Receipt Date: 20150708
  Transmission Date: 20151125
  Serious: Yes (Death)
  Sender: FDA-Public Use
  Company Number: US-ELI_LILLY_AND_COMPANY-US201401011826

PATIENT
  Age: 51 Year
  Sex: Male

DRUGS (2)
  1. METHOTREXATE [Concomitant]
     Active Substance: METHOTREXATE
  2. GEMZAR [Suspect]
     Active Substance: GEMCITABINE HYDROCHLORIDE
     Indication: SINUS CANCER METASTATIC
     Dosage: 800 MG/M2, DAYS 1, 8, AND 15 EVERY 28 DAYS FOR 6 CYCLES
     Route: 042
     Dates: start: 20130306, end: 20130611

REACTIONS (2)
  - Off label use [Recovered/Resolved]
  - Malignant neoplasm progression [Fatal]

NARRATIVE: CASE EVENT DATE: 20130306
